FAERS Safety Report 17979027 (Version 1)
Quarter: 2020Q3

REPORT INFORMATION
  Report Type: Spontaneous
  Country: GB (occurrence: GB)
  Receive Date: 20200703
  Receipt Date: 20200703
  Transmission Date: 20201103
  Serious: Yes (Other)
  Sender: FDA-Public Use
  Company Number: GB-TEVA-2020-GB-1794042

PATIENT
  Age: 56 Year
  Sex: Female

DRUGS (2)
  1. EVOREL [Concomitant]
     Indication: HORMONE REPLACEMENT THERAPY
  2. LORATADINE. [Suspect]
     Active Substance: LORATADINE
     Indication: SEASONAL ALLERGY
     Dosage: 10 MG
     Route: 048

REACTIONS (3)
  - Abdominal distension [Recovered/Resolved]
  - Sinus headache [Recovered/Resolved]
  - Sleep disorder [Recovered/Resolved]
